FAERS Safety Report 5169586-6 (Version None)
Quarter: 2006Q4

REPORT INFORMATION
  Report Type: 
  Country: None (occurrence: None)
  Receive Date: 20060918
  Receipt Date: 20051011
  Transmission Date: 20070319
  Serious: Yes (Life-Threatening, Hospitalization)
  Sender: FDA-Public Use
  Company Number: US-JNJFOC-20051003454

PATIENT
  Age: 18 Year
  Sex: Female
  Weight: 46 kg

DRUGS (5)
  1. TOPAMAX [Suspect]
     Indication: CONVULSION
     Dosage: 250 MG, IN 1 DAY
  2. ZYPREXA [Suspect]
     Indication: DEPRESSION
     Dosage: 10 MG, IN 1 DAY
  3. PHENYTEK (ALL OTHER THERAPEUTIC PRODUCTS) [Concomitant]
  4. RAPAMUNE [Concomitant]
  5. PROGRAF [Concomitant]

REACTIONS (1)
  - HEPATIC FAILURE [None]
